FAERS Safety Report 23662164 (Version 2)
Quarter: 2024Q4

REPORT INFORMATION
  Report Type: Report from Study
  Country: US (occurrence: US)
  Receive Date: 20240322
  Receipt Date: 20241002
  Transmission Date: 20250115
  Serious: No
  Sender: ROCHE
  Company Number: US-ROCHE-3509620

PATIENT
  Age: 48 Year
  Sex: Female
  Weight: 72.57 kg

DRUGS (10)
  1. OCREVUS [Suspect]
     Active Substance: OCRELIZUMAB
     Indication: Relapsing-remitting multiple sclerosis
     Route: 042
     Dates: start: 20240205
  2. OCREVUS [Suspect]
     Active Substance: OCRELIZUMAB
     Dosage: DATE OF SERVICE;05-FEB-2024
     Route: 042
     Dates: start: 20240205, end: 20240205
  3. KLONOPIN [Suspect]
     Active Substance: CLONAZEPAM
     Indication: Anxiety
     Route: 048
     Dates: start: 2013
  4. SOLU-MEDROL [Suspect]
     Active Substance: METHYLPREDNISOLONE SODIUM SUCCINATE
     Indication: Product used for unknown indication
     Route: 065
     Dates: start: 20240205, end: 20240205
  5. LYRICA [Concomitant]
     Active Substance: PREGABALIN
     Indication: Neuropathy peripheral
     Dosage: 1 TABLET IN THE AM, 1 TABLET AT LUNCH TIME AND 2 TABLETS AT BEDTIME
     Route: 048
  6. LYRICA [Concomitant]
     Active Substance: PREGABALIN
     Indication: Muscle spasms
  7. HYDROCODONE [Concomitant]
     Active Substance: HYDROCODONE
     Indication: Pain
     Dosage: STRENGTH: 10/325 MG
     Route: 048
     Dates: start: 2013
  8. AMITRIPTYLINE [Concomitant]
     Active Substance: AMITRIPTYLINE
     Indication: Anxiety
     Dosage: 2 TABS AT BEDTIME/ AT NIGHT FOR SLEEP, BLADDER INTERSTITIAL CYSTITIS.
     Route: 048
  9. AMITRIPTYLINE [Concomitant]
     Active Substance: AMITRIPTYLINE
     Indication: Migraine
  10. AMITRIPTYLINE [Concomitant]
     Active Substance: AMITRIPTYLINE
     Indication: Depression

REACTIONS (11)
  - Erythema [Recovered/Resolved]
  - Throat irritation [Recovered/Resolved]
  - Headache [Recovered/Resolved]
  - Anxiety [Not Recovered/Not Resolved]
  - Depression [Not Recovered/Not Resolved]
  - Product after taste [Recovered/Resolved]
  - Hyperhidrosis [Recovered/Resolved]
  - Fatigue [Recovered/Resolved]
  - Off label use [Unknown]
  - JC polyomavirus test positive [Not Recovered/Not Resolved]
  - Flushing [Recovered/Resolved]

NARRATIVE: CASE EVENT DATE: 20240205
